FAERS Safety Report 5629357-0 (Version None)
Quarter: 2008Q1

REPORT INFORMATION
  Report Type: 
  Country: None (occurrence: None)
  Receive Date: 20080218
  Receipt Date: 20080208
  Transmission Date: 20080703
  Serious: Yes (Hospitalization, Disabling)
  Sender: FDA-Public Use
  Company Number: DE-ELI_LILLY_AND_COMPANY-DE200802001924

PATIENT
  Age: 49 Year
  Sex: Male

DRUGS (3)
  1. OLANZAPINE [Suspect]
     Indication: MENTAL DISORDER
     Dosage: 2.5 MG, UNK
     Route: 048
     Dates: start: 20060701, end: 20071120
  2. TREVILOR [Concomitant]
     Dosage: 75 MG, UNK
     Route: 048
     Dates: start: 20060701
  3. QUILONIUM-R [Concomitant]
     Dosage: 1125 MG, UNK
     Route: 048
     Dates: start: 20060701

REACTIONS (6)
  - ALANINE AMINOTRANSFERASE INCREASED [None]
  - ALCOHOLISM [None]
  - DIABETES MELLITUS [None]
  - GAMMA-GLUTAMYLTRANSFERASE INCREASED [None]
  - HOSPITALISATION [None]
  - WEIGHT INCREASED [None]
